FAERS Safety Report 4870110-3 (Version None)
Quarter: 2005Q4

REPORT INFORMATION
  Report Type: 
  Country: None (occurrence: None)
  Receive Date: 20051228
  Receipt Date: 20051205
  Transmission Date: 20060501
  Serious: Yes (Disabling)
  Sender: FDA-Public Use
  Company Number: 385761

PATIENT
  Age: 20 Year
  Sex: Male
  Weight: 78 kg

DRUGS (4)
  1. ACCUTANE [Suspect]
     Indication: ACNE CYSTIC
     Dosage: 40 MG 2PER DAY ORAL
     Route: 048
     Dates: start: 20000816, end: 20011115
  2. KEFLEX [Concomitant]
  3. TAC 3 (TRIAMCINOLONE) [Concomitant]
  4. MONODOX [Concomitant]

REACTIONS (50)
  - ANAEMIA [None]
  - ANAL FISSURE [None]
  - ANXIETY [None]
  - ARTHRALGIA [None]
  - ARTHRITIS [None]
  - BLOOD ALBUMIN DECREASED [None]
  - BLOOD CALCIUM DECREASED [None]
  - CANDIDIASIS [None]
  - COLITIS ULCERATIVE [None]
  - CONCUSSION [None]
  - CONSTIPATION [None]
  - CROHN'S DISEASE [None]
  - DIZZINESS [None]
  - DRUG INTOLERANCE [None]
  - DYSPEPSIA [None]
  - EPIDIDYMITIS [None]
  - GASTRIC HAEMORRHAGE [None]
  - GASTRODUODENITIS [None]
  - GASTROINTESTINAL DISORDER [None]
  - GASTROOESOPHAGEAL REFLUX DISEASE [None]
  - HAEMATOCRIT DECREASED [None]
  - HIATUS HERNIA [None]
  - HYPERTENSION [None]
  - HYPOVOLAEMIA [None]
  - INFLAMMATORY BOWEL DISEASE [None]
  - INTESTINAL HAEMORRHAGE [None]
  - INTESTINAL PERFORATION [None]
  - IRRITABLE BOWEL SYNDROME [None]
  - LOWER LIMB FRACTURE [None]
  - LYMPHOCYTE PERCENTAGE DECREASED [None]
  - MICROCYTOSIS [None]
  - MOUTH ULCERATION [None]
  - MUSCULOSKELETAL CHEST PAIN [None]
  - NAUSEA [None]
  - NIGHT BLINDNESS [None]
  - OEDEMA PERIPHERAL [None]
  - ORCHITIS [None]
  - ORGAN FAILURE [None]
  - PAIN IN EXTREMITY [None]
  - PROCTITIS ULCERATIVE [None]
  - ROAD TRAFFIC ACCIDENT [None]
  - SEBORRHOEIC DERMATITIS [None]
  - SKIN LACERATION [None]
  - SKIN TEST POSITIVE [None]
  - SLEEP DISORDER [None]
  - SWELLING [None]
  - THALASSAEMIA [None]
  - TONGUE ULCERATION [None]
  - UPPER LIMB FRACTURE [None]
  - VISUAL DISTURBANCE [None]
